FAERS Safety Report 8990774 (Version 1)
Quarter: 2012Q4

REPORT INFORMATION
  Report Type: Report from Study
  Country: CA (occurrence: CA)
  Receive Date: 20121228
  Receipt Date: 20121228
  Transmission Date: 20130627
  Serious: Yes (Life-Threatening)
  Sender: FDA-Public Use
  Company Number: CA-JNJFOC-20121207163

PATIENT
  Age: 51 Year
  Sex: Male
  Weight: 91.8 kg

DRUGS (1)
  1. REMICADE [Suspect]
     Indication: ARTHRITIS
     Route: 042

REACTIONS (1)
  - Gastrointestinal carcinoma [Not Recovered/Not Resolved]
